FAERS Safety Report 9097012 (Version 1)
Quarter: 2013Q1

REPORT INFORMATION
  Report Type: Spontaneous
  Country: US (occurrence: None)
  Receive Date: 20130124
  Receipt Date: 20130124
  Transmission Date: 20140127
  Serious: Yes (Life-Threatening, Other)
  Sender: FDA-Public Use
  Company Number: 001459959A

PATIENT
  Age: 48 Year
  Sex: Female

DRUGS (3)
  1. PROACTIV RENEWING CLEANSER [Suspect]
     Indication: ACNE
     Route: 062
     Dates: start: 20121227, end: 20121228
  2. PROACTIV REPAIRING TREATMENT [Suspect]
     Indication: ACNE
     Route: 062
     Dates: start: 20121227, end: 20121228
  3. VITACLEAR [Concomitant]

REACTIONS (5)
  - Eye swelling [None]
  - Swelling face [None]
  - Throat tightness [None]
  - Pharyngeal oedema [None]
  - Hypersensitivity [None]
